FAERS Safety Report 5026137-4 (Version None)
Quarter: 2006Q2

REPORT INFORMATION
  Report Type: 
  Country: None (occurrence: None)
  Receive Date: 20060612
  Receipt Date: 20060612
  Transmission Date: 20061013
  Serious: No
  Sender: FDA-Public Use
  Company Number: None

PATIENT
  Age: 47 Year
  Sex: Male
  Weight: 106.5953 kg

DRUGS (2)
  1. PROZAC [Suspect]
     Indication: ANXIETY
     Dates: start: 20050320, end: 20051008
  2. PROZAC [Suspect]
     Indication: DEPRESSION
     Dates: start: 20050320, end: 20051008

REACTIONS (7)
  - ANORGASMIA [None]
  - BLUNTED AFFECT [None]
  - ERECTILE DYSFUNCTION [None]
  - FEELING ABNORMAL [None]
  - INDIFFERENCE [None]
  - LOSS OF LIBIDO [None]
  - MALE SEXUAL DYSFUNCTION [None]
